FAERS Safety Report 21297512 (Version 1)
Quarter: 2022Q3

REPORT INFORMATION
  Report Type: Spontaneous
  Country: US (occurrence: US)
  Receive Date: 20220906
  Receipt Date: 20220906
  Transmission Date: 20221027
  Serious: No
  Sender: FDA-Public Use
  Company Number: US-drreddys-SPO/USA/22/0154100

PATIENT
  Age: 28 Year
  Sex: Male

DRUGS (1)
  1. ZENATANE [Suspect]
     Active Substance: ISOTRETINOIN
     Indication: Product used for unknown indication
     Dosage: RMA ISSUE DATE: 15 APRIL 2022 05:43:42 PM, 28 JUNE 2022 10:00:18 AM AND 27 JULY 2022 04:53:58 PM,

REACTIONS (1)
  - Blood triglycerides increased [Unknown]
